FAERS Safety Report 20692121 (Version 3)
Quarter: 2022Q2

REPORT INFORMATION
  Report Type: Report from Study
  Country: IN (occurrence: IN)
  Receive Date: 20220409
  Receipt Date: 20220426
  Transmission Date: 20220720
  Serious: Yes (Hospitalization, Other)
  Sender: FDA-Public Use
  Company Number: IN-NOVARTISPH-PHHY2019IN031718

PATIENT
  Age: 36 Year
  Sex: Female

DRUGS (7)
  1. SIMULECT [Suspect]
     Active Substance: BASILIXIMAB
     Indication: Renal transplant
     Dosage: 20 MG
     Route: 042
     Dates: start: 20190130
  2. SIMULECT [Suspect]
     Active Substance: BASILIXIMAB
     Dosage: 20 MG
     Route: 042
     Dates: start: 20190203
  3. TACROLIMUS [Suspect]
     Active Substance: TACROLIMUS
     Indication: Product used for unknown indication
     Dosage: UNK (WITHHELD)
     Route: 065
  4. MYCOPHENOLIC ACID [Concomitant]
     Active Substance: MYCOPHENOLIC ACID
     Indication: Product used for unknown indication
     Dosage: UNK
     Route: 065
  5. PREDNISOLONE [Concomitant]
     Active Substance: PREDNISOLONE
     Indication: Product used for unknown indication
     Dosage: UNK
     Route: 065
  6. IMMUNOREL [Concomitant]
     Indication: Product used for unknown indication
     Dosage: 5 DOSAGE FORM (5 DOSES)
     Route: 042
  7. BORTEZOMIB [Concomitant]
     Active Substance: BORTEZOMIB
     Indication: Product used for unknown indication
     Dosage: 2 DOSAGE FORM (2 DOSES)
     Route: 042

REACTIONS (10)
  - Kidney transplant rejection [Unknown]
  - Glomerulonephritis [Unknown]
  - Transplant dysfunction [Unknown]
  - Blood creatinine increased [Recovering/Resolving]
  - Renal tubular necrosis [Unknown]
  - Leukocytosis [Unknown]
  - Lymphocyte count decreased [Unknown]
  - Normochromic normocytic anaemia [Unknown]
  - Urinary tract inflammation [Unknown]
  - Bladder dilatation [Unknown]

NARRATIVE: CASE EVENT DATE: 20190130
